FAERS Safety Report 12037533 (Version 2)
Quarter: 2016Q1

REPORT INFORMATION
  Report Type: Spontaneous
  Country: IT (occurrence: IT)
  Receive Date: 20160208
  Receipt Date: 20160217
  Transmission Date: 20160526
  Serious: Yes (Disabling, Other)
  Sender: FDA-Public Use
  Company Number: PHHY2016IT011212

PATIENT
  Age: 50 Year
  Sex: Female

DRUGS (3)
  1. PACLITAXEL. [Concomitant]
     Active Substance: PACLITAXEL
     Indication: HETEROPLASIA
     Dosage: 150 MG, UNK
     Route: 065
     Dates: start: 20150504
  2. AROMASIN [Concomitant]
     Active Substance: EXEMESTANE
     Indication: BREAST CANCER
     Dosage: 25 MG, UNK (FOR 4 MONTHS)
     Route: 048
     Dates: start: 20150910
  3. AFINITOR [Suspect]
     Active Substance: EVEROLIMUS
     Indication: BREAST CANCER
     Dosage: 10 MG, QD
     Route: 048
     Dates: start: 20150921, end: 20160127

REACTIONS (8)
  - Blindness unilateral [Not Recovered/Not Resolved]
  - Optic atrophy [Unknown]
  - Nervous system disorder [Unknown]
  - Blindness [Unknown]
  - Pupillary reflex impaired [Unknown]
  - Mydriasis [Unknown]
  - Optic nerve compression [Not Recovered/Not Resolved]
  - Visual acuity reduced [Not Recovered/Not Resolved]

NARRATIVE: CASE EVENT DATE: 20151209
